FAERS Safety Report 21872161 (Version 1)
Quarter: 2023Q1

REPORT INFORMATION
  Report Type: Spontaneous
  Country: US (occurrence: None)
  Receive Date: 20230113
  Receipt Date: 20230113
  Transmission Date: 20230417
  Serious: No
  Sender: FDA-Public Use
  Company Number: None

PATIENT
  Age: 81 Year
  Sex: Male
  Weight: 92.99 kg

DRUGS (13)
  1. LEUKINE [Suspect]
     Active Substance: SARGRAMOSTIM
     Indication: Dementia
     Dosage: FREQUENCY : TWICE A DAY;?
     Route: 058
  2. ARICEPT [Concomitant]
     Active Substance: DONEPEZIL HYDROCHLORIDE
  3. BACTERIOSTATIC WATER [Concomitant]
     Active Substance: WATER
  4. CARVEDILOL [Concomitant]
     Active Substance: CARVEDILOL
  5. CRESTOR [Concomitant]
     Active Substance: ROSUVASTATIN CALCIUM
  6. CALCIUM + D3 [Concomitant]
  7. GLUCOSAMINE-VIT D3 [Concomitant]
  8. INSPRA [Concomitant]
     Active Substance: EPLERENONE
  9. LEXAPRO [Concomitant]
     Active Substance: ESCITALOPRAM OXALATE
  10. NAMENDA XR [Concomitant]
     Active Substance: MEMANTINE HYDROCHLORIDE
  11. WELCHOL [Concomitant]
     Active Substance: COLESEVELAM HYDROCHLORIDE
  12. XARELTO [Concomitant]
     Active Substance: RIVAROXABAN
  13. ZETIA [Concomitant]
     Active Substance: EZETIMIBE

REACTIONS (1)
  - Disease progression [None]
